FAERS Safety Report 23579895 (Version 5)
Quarter: 2025Q1

REPORT INFORMATION
  Report Type: Spontaneous
  Country: GB (occurrence: GB)
  Receive Date: 20240229
  Receipt Date: 20250224
  Transmission Date: 20250409
  Serious: Yes (Other)
  Sender: ROCHE
  Company Number: GB-PFIZER INC-PV202400011495

PATIENT
  Age: 40 Year
  Sex: Female

DRUGS (5)
  1. BEVACIZUMAB [Suspect]
     Active Substance: BEVACIZUMAB
     Indication: Cervix cancer metastatic
     Route: 065
     Dates: start: 202312
  2. PEMBROLIZUMAB [Suspect]
     Active Substance: PEMBROLIZUMAB
     Indication: Cervix cancer metastatic
     Route: 065
     Dates: start: 202312
  3. CARBOPLATIN [Suspect]
     Active Substance: CARBOPLATIN
     Indication: Cervix cancer metastatic
     Route: 065
     Dates: start: 202312
  4. PACLITAXEL [Suspect]
     Active Substance: PACLITAXEL
     Indication: Cervix cancer metastatic
     Route: 065
     Dates: start: 202312
  5. ESTRADIOL [Concomitant]
     Active Substance: ESTRADIOL

REACTIONS (3)
  - Skin toxicity [Unknown]
  - Rash maculo-papular [Unknown]
  - Pruritus [Unknown]
